FAERS Safety Report 6457306-4 (Version None)
Quarter: 2009Q4

REPORT INFORMATION
  Report Type: 
  Country: None (occurrence: None)
  Receive Date: 20091119
  Receipt Date: 20091101
  Transmission Date: 20100525
  Serious: Yes (Other)
  Sender: FDA-Public Use
  Company Number: 2009SA001018

PATIENT
  Age: 59 Year
  Sex: Male

DRUGS (8)
  1. MULTAQ [Suspect]
     Indication: ARRHYTHMIA
     Dosage: 400 MILLIGRAM(S); TWICE A DAY; ORAL
     Route: 048
     Dates: start: 20091102
  2. OXYCONTIN [Suspect]
     Indication: BACK PAIN
     Dates: start: 20060101
  3. SENNA [Concomitant]
  4. CALCIUM [Concomitant]
  5. ZINC [Concomitant]
  6. ASPIRIN [Concomitant]
  7. BISOPROLOL [Concomitant]
  8. TIKOSYN [Concomitant]

REACTIONS (6)
  - ANGER [None]
  - ATRIAL FIBRILLATION [None]
  - BACK PAIN [None]
  - DIZZINESS [None]
  - PAIN [None]
  - STRESS [None]
